FAERS Safety Report 15358002 (Version 1)
Quarter: 2018Q3

REPORT INFORMATION
  Report Type: Spontaneous
  Country: US (occurrence: US)
  Receive Date: 20180906
  Receipt Date: 20180906
  Transmission Date: 20181010
  Serious: No
  Sender: FDA-Public Use
  Company Number: US-AQUA PHARMACEUTICALS-2017AQU000275

PATIENT

DRUGS (1)
  1. XOLEGEL [Suspect]
     Active Substance: KETOCONAZOLE
     Indication: DERMATITIS
     Dosage: UNK
     Route: 061
     Dates: start: 20170615, end: 20170615

REACTIONS (1)
  - Dizziness [Not Recovered/Not Resolved]

NARRATIVE: CASE EVENT DATE: 20170616
